FAERS Safety Report 19325240 (Version 1)
Quarter: 2021Q2

REPORT INFORMATION
  Report Type: Spontaneous
  Country: US (occurrence: US)
  Receive Date: 20210528
  Receipt Date: 20210528
  Transmission Date: 20210717
  Serious: No
  Sender: FDA-Public Use
  Company Number: US-TAKEDA-2021TUS032458

PATIENT
  Sex: Female
  Weight: 58 kg

DRUGS (27)
  1. L?METHYLFOLATE CALCIUM [Concomitant]
     Active Substance: LEVOMEFOLATE CALCIUM
     Dosage: 10 MILLIGRAM
     Route: 065
  2. NORVASC [Concomitant]
     Active Substance: AMLODIPINE BESYLATE
     Dosage: 10 MILLIGRAM
     Route: 065
  3. VITAMIN D3 [Concomitant]
     Active Substance: CHOLECALCIFEROL
     Dosage: 2000 INTERNATIONAL UNIT
     Route: 065
  4. MOTEGRITY [Suspect]
     Active Substance: PRUCALOPRIDE SUCCINATE
     Indication: SJOGREN^S SYNDROME
     Dosage: 2 MILLIGRAM, UNK
     Route: 065
  5. PRAVASTATIN. [Concomitant]
     Active Substance: PRAVASTATIN
     Route: 065
  6. PHENERGAN [Concomitant]
     Active Substance: PROMETHAZINE HYDROCHLORIDE
     Dosage: 12.5 MILLIGRAM, PRN
     Route: 065
  7. VITAMIN C [Concomitant]
     Active Substance: ASCORBIC ACID
     Dosage: 1000 UNK, TID
     Route: 065
  8. METFORMIN ER [Concomitant]
     Active Substance: METFORMIN HYDROCHLORIDE
     Dosage: 2000 MILLIGRAM
     Route: 065
  9. METHENAMINE HIPPURATE. [Concomitant]
     Active Substance: METHENAMINE HIPPURATE
     Route: 065
  10. WELLBUTRIN [Concomitant]
     Active Substance: BUPROPION HYDROCHLORIDE
     Dosage: 300 MILLIGRAM
     Route: 065
  11. MOTILIUM [Concomitant]
     Active Substance: DOMPERIDONE
     Dosage: 10 MILLIGRAM, QID
     Route: 065
  12. NUTRI GO OMEGA [Concomitant]
     Dosage: 4000 MILLIGRAM
     Route: 065
  13. AMITIZA [Concomitant]
     Active Substance: LUBIPROSTONE
     Dosage: 24 MICROGRAM, BID
     Route: 065
  14. ZOFRAN [Concomitant]
     Active Substance: ONDANSETRON HYDROCHLORIDE
     Dosage: 8 MILLIGRAM, PRN
     Route: 065
  15. CLONAZEPAM. [Concomitant]
     Active Substance: CLONAZEPAM
     Dosage: 0.5 UNK
     Route: 065
  16. METHYLCOBALAMIN. [Concomitant]
     Active Substance: METHYLCOBALAMIN
     Route: 065
  17. DOXYCYCLINE. [Concomitant]
     Active Substance: DOXYCYCLINE
     Dosage: 50 MILLIGRAM
     Route: 065
  18. B?COMPLEX PLUS [Concomitant]
     Route: 065
  19. ADDERALL [Concomitant]
     Active Substance: AMPHETAMINE ASPARTATE\AMPHETAMINE SULFATE\DEXTROAMPHETAMINE SACCHARATE\DEXTROAMPHETAMINE SULFATE
     Dosage: 20 MILLIGRAM
     Route: 065
  20. ADDERALL [Concomitant]
     Active Substance: AMPHETAMINE ASPARTATE\AMPHETAMINE SULFATE\DEXTROAMPHETAMINE SACCHARATE\DEXTROAMPHETAMINE SULFATE
     Dosage: 10 MILLIGRAM
     Route: 065
  21. SINGULAIR [Concomitant]
     Active Substance: MONTELUKAST SODIUM
     Dosage: 10 MILLIGRAM
     Route: 065
  22. LEVOTHYROXINE [LEVOTHYROXINE SODIUM] [Concomitant]
     Active Substance: LEVOTHYROXINE SODIUM
     Dosage: 100 MICROGRAM
     Route: 065
  23. VALSARTAN. [Concomitant]
     Active Substance: VALSARTAN
     Dosage: 100 MILLIGRAM
     Route: 065
  24. CALCIUM MAGNESIUM [CALCIUM;MAGNESIUM] [Concomitant]
     Route: 065
  25. ADDERALL [Concomitant]
     Active Substance: AMPHETAMINE ASPARTATE\AMPHETAMINE SULFATE\DEXTROAMPHETAMINE SACCHARATE\DEXTROAMPHETAMINE SULFATE
     Dosage: 30 MILLIGRAM
     Route: 065
  26. OMEPRAZOLE. [Concomitant]
     Active Substance: OMEPRAZOLE
     Route: 065
  27. PLAVIX [Concomitant]
     Active Substance: CLOPIDOGREL BISULFATE
     Dosage: 75 MILLIGRAM
     Route: 065

REACTIONS (7)
  - Anorectal discomfort [Unknown]
  - Headache [Unknown]
  - Nausea [Unknown]
  - Abdominal discomfort [Unknown]
  - Constipation [Unknown]
  - Vomiting [Unknown]
  - Recalled product [Unknown]
